FAERS Safety Report 19758635 (Version 1)
Quarter: 2021Q3

REPORT INFORMATION
  Report Type: Spontaneous
  Country: US (occurrence: US)
  Receive Date: 20210827
  Receipt Date: 20210827
  Transmission Date: 20211014
  Serious: No
  Sender: FDA-Public Use
  Company Number: US-009507513-2108USA006222

PATIENT

DRUGS (2)
  1. INTRON A [Suspect]
     Active Substance: INTERFERON ALFA-2B
     Indication: ADULT T-CELL LYMPHOMA/LEUKAEMIA
  2. TENOFOVIR [Concomitant]
     Active Substance: TENOFOVIR
     Indication: ADULT T-CELL LYMPHOMA/LEUKAEMIA

REACTIONS (1)
  - Off label use [Unknown]
